FAERS Safety Report 17107212 (Version 2)
Quarter: 2020Q2

REPORT INFORMATION
  Report Type: Spontaneous
  Country: US (occurrence: US)
  Receive Date: 20191203
  Receipt Date: 20200513
  Transmission Date: 20200713
  Serious: Yes (Other)
  Sender: FDA-Public Use
  Company Number: US-ASTRAZENECA-2019SF70383

PATIENT
  Sex: Male

DRUGS (2)
  1. SEROQUEL [Suspect]
     Active Substance: QUETIAPINE FUMARATE
     Indication: DEPENDENT PERSONALITY DISORDER
     Dosage: 300MG IN THE MORNING AND SEROQUEL 100MG IN THE EVENING
     Route: 048
  2. BENADRYL [Concomitant]
     Active Substance: DIPHENHYDRAMINE HYDROCHLORIDE

REACTIONS (5)
  - Abnormal dreams [Unknown]
  - Hypertensive crisis [Unknown]
  - Seizure [Unknown]
  - Brain compression [Unknown]
  - Multiple fractures [Unknown]
